FAERS Safety Report 19604244 (Version 1)
Quarter: 2021Q3

REPORT INFORMATION
  Report Type: Other
  Country: US (occurrence: US)
  Receive Date: 20210723
  Receipt Date: 20210723
  Transmission Date: 20211014
  Serious: Yes (Death, Other)
  Sender: FDA-Public Use
  Company Number: US-APOTEX-2021AP023212

PATIENT
  Age: 66 Year
  Sex: Female

DRUGS (4)
  1. RANITIDINE INJECTION [Suspect]
     Active Substance: RANITIDINE
     Indication: DYSPEPSIA
     Dosage: OTHER
     Route: 065
     Dates: start: 200405, end: 201901
  2. RANITIDINE TABLETS [Suspect]
     Active Substance: RANITIDINE HYDROCHLORIDE
     Indication: DYSPEPSIA
     Dosage: DAILY
     Route: 065
     Dates: start: 200401, end: 201901
  3. ZANTAC [Suspect]
     Active Substance: RANITIDINE HYDROCHLORIDE
     Indication: DYSPEPSIA
     Dosage: OTHER (TWICE DAILY (MORNING AND EVENING))
     Route: 065
     Dates: start: 200405, end: 201901
  4. ZANTAC [Suspect]
     Active Substance: RANITIDINE HYDROCHLORIDE
     Indication: DYSPEPSIA
     Dosage: OTHER (TWICE DAILY (MORNING AND EVENING))
     Route: 065
     Dates: start: 200405, end: 201901

REACTIONS (1)
  - Oesophageal carcinoma [Fatal]

NARRATIVE: CASE EVENT DATE: 20170101
